FAERS Safety Report 5751155-8 (Version None)
Quarter: 2008Q2

REPORT INFORMATION
  Report Type: 
  Country: None (occurrence: None)
  Receive Date: 20080523
  Receipt Date: 20080211
  Transmission Date: 20081010
  Serious: Yes (Other)
  Sender: FDA-Public Use
  Company Number: E2090-00389-SPO-US

PATIENT
  Age: 54 Year
  Sex: Male

DRUGS (2)
  1. ZONEGRAN [Suspect]
     Indication: CONVULSION
     Dosage: 400 MILLIMOL, 1 IN 1 D, ORAL
     Route: 048
     Dates: start: 20010101
  2. KEPPRA [Concomitant]

REACTIONS (2)
  - GRAND MAL CONVULSION [None]
  - HAND FRACTURE [None]
